FAERS Safety Report 9760409 (Version 1)
Quarter: 2013Q4

REPORT INFORMATION
  Report Type: Spontaneous
  Country: US (occurrence: US)
  Receive Date: 20131216
  Receipt Date: 20131216
  Transmission Date: 20140711
  Serious: No
  Sender: FDA-Public Use
  Company Number: US-GILEAD-2010-0029493

PATIENT
  Sex: Female

DRUGS (9)
  1. LETAIRIS [Suspect]
     Indication: PULMONARY ARTERIAL HYPERTENSION
     Route: 048
     Dates: start: 20100504
  2. VITAMIN E [Concomitant]
  3. VITAMIN C [Concomitant]
  4. UROCIT-K [Concomitant]
  5. DIGOXIN [Concomitant]
  6. PREDNISONE [Concomitant]
  7. ZOLOFT [Concomitant]
  8. COREG [Concomitant]
  9. ZOCOR [Concomitant]

REACTIONS (5)
  - Swelling face [Unknown]
  - Abdominal distension [Unknown]
  - Local swelling [Unknown]
  - Dyspnoea [Unknown]
  - Sinus congestion [Unknown]
